FAERS Safety Report 4938434-9 (Version None)
Quarter: 2006Q1

REPORT INFORMATION
  Report Type: 
  Country: None (occurrence: None)
  Receive Date: 20060302
  Receipt Date: 20060217
  Transmission Date: 20060701
  Serious: Yes (Other)
  Sender: FDA-Public Use
  Company Number: 2006JP000416

PATIENT
  Age: 8 Month
  Sex: Female

DRUGS (1)
  1. PROTOPIC [Suspect]
     Indication: DERMATITIS ATOPIC
     Dosage: 0.03%, BID, TOPICAL
     Route: 061
     Dates: start: 20060206, end: 20060201

REACTIONS (2)
  - CRYING [None]
  - SCRATCH [None]
